FAERS Safety Report 14110242 (Version 1)
Quarter: 2017Q4

REPORT INFORMATION
  Report Type: Spontaneous
  Country: MX (occurrence: MX)
  Receive Date: 20171020
  Receipt Date: 20171020
  Transmission Date: 20180321
  Serious: Yes (Other)
  Sender: FDA-Public Use
  Company Number: MX-ASTRAZENECA-2017SF06527

PATIENT
  Sex: Female

DRUGS (2)
  1. PALBOCICLIB [Suspect]
     Active Substance: PALBOCICLIB
     Indication: BREAST CANCER METASTATIC
     Dosage: 125.0MG UNKNOWN
     Route: 048
     Dates: start: 201610
  2. FULVESTRANT. [Suspect]
     Active Substance: FULVESTRANT
     Indication: BREAST CANCER METASTATIC
     Dosage: 500.0MG UNKNOWN
     Route: 030
     Dates: start: 201610

REACTIONS (3)
  - Malignant neoplasm progression [Unknown]
  - Neutropenia [Recovered/Resolved]
  - Off label use [Unknown]
